FAERS Safety Report 15143431 (Version 1)
Quarter: 2018Q3

REPORT INFORMATION
  Report Type: Spontaneous
  Country: US (occurrence: US)
  Receive Date: 20180618
  Receipt Date: 20180618
  Transmission Date: 20181010
  Serious: Yes (Hospitalization)
  Sender: FDA-Public Use
  Company Number: None

PATIENT
  Sex: Male

DRUGS (15)
  1. CLOPIDOGREL [Concomitant]
     Active Substance: CLOPIDOGREL BISULFATE
  2. OMEPRAZOLE. [Concomitant]
     Active Substance: OMEPRAZOLE
  3. METFORMIN [Concomitant]
     Active Substance: METFORMIN HYDROCHLORIDE
  4. SALINE MIST [Concomitant]
     Active Substance: SODIUM CHLORIDE
  5. METOPROLOL SUC [Concomitant]
  6. REMODULIN [Concomitant]
     Active Substance: TREPROSTINIL
  7. PREDNISONE. [Concomitant]
     Active Substance: PREDNISONE
  8. FERROUS SULFATE. [Concomitant]
     Active Substance: FERROUS SULFATE
  9. GABAPENTIN. [Concomitant]
     Active Substance: GABAPENTIN
  10. ANORO ELLIPTA [Concomitant]
     Active Substance: UMECLIDINIUM BROMIDE\VILANTEROL TRIFENATATE
  11. ADCIRCA [Suspect]
     Active Substance: TADALAFIL
     Indication: PULMONARY ARTERIAL HYPERTENSION
     Route: 048
     Dates: start: 20180413
  12. ROSUVASTATIN. [Concomitant]
     Active Substance: ROSUVASTATIN
  13. VENLAFAXINE [Concomitant]
     Active Substance: VENLAFAXINE HYDROCHLORIDE
  14. METOPROLOL TAR [Concomitant]
     Active Substance: METOPROLOL TARTRATE
  15. LANTUS [Concomitant]
     Active Substance: INSULIN GLARGINE

REACTIONS (4)
  - Femur fracture [None]
  - Condition aggravated [None]
  - Viral infection [None]
  - Fall [None]

NARRATIVE: CASE EVENT DATE: 2018
